FAERS Safety Report 4761614-2 (Version None)
Quarter: 2005Q3

REPORT INFORMATION
  Report Type: 
  Country: None (occurrence: None)
  Receive Date: 20050906
  Receipt Date: 20050314
  Transmission Date: 20060218
  Serious: Yes (Hospitalization)
  Sender: FDA-Public Use
  Company Number: US-MERCK-0503USA02953

PATIENT
  Age: 55 Year
  Sex: Male
  Weight: 86 kg

DRUGS (13)
  1. VIOXX [Suspect]
     Indication: BACK PAIN
     Route: 048
     Dates: start: 20010719, end: 20030110
  2. VIOXX [Suspect]
     Route: 048
     Dates: end: 20040424
  3. VIOXX [Suspect]
     Indication: INTERVERTEBRAL DISC PROTRUSION
     Route: 048
     Dates: start: 20010719, end: 20030110
  4. VIOXX [Suspect]
     Route: 048
     Dates: end: 20040424
  5. ALLEGRA [Concomitant]
     Route: 048
  6. CLARITIN [Concomitant]
     Indication: ALLERGIC SINUSITIS
     Route: 065
  7. TEQUIN [Concomitant]
     Route: 065
  8. NASONEX [Concomitant]
     Route: 065
  9. ADVAIR DISKUS 100/50 [Concomitant]
     Route: 065
  10. METHYLPREDNISOLONE [Concomitant]
     Route: 065
  11. ACETAMINOPHEN AND PROPOXYPHENE NAPSYLATE [Concomitant]
     Route: 065
     Dates: start: 20020121
  12. MOTRIN [Concomitant]
     Route: 065
  13. TYLENOL [Concomitant]
     Route: 065

REACTIONS (13)
  - ACUTE MYOCARDIAL INFARCTION [None]
  - AMNESIA [None]
  - BENIGN PROSTATIC HYPERPLASIA [None]
  - CARDIOPLEGIA [None]
  - CORONARY ARTERY DISEASE [None]
  - CORONARY ARTERY STENOSIS [None]
  - DYSPEPSIA [None]
  - HALLUCINATION [None]
  - HERPES ZOSTER [None]
  - HYPERTENSION [None]
  - INTRACARDIAC THROMBUS [None]
  - OEDEMA PERIPHERAL [None]
  - VENTRICULAR HYPOKINESIA [None]
